FAERS Safety Report 12626217 (Version 2)
Quarter: 2016Q3

REPORT INFORMATION
  Report Type: Report from Study
  Country: US (occurrence: US)
  Receive Date: 20160805
  Receipt Date: 20160831
  Transmission Date: 20161109
  Serious: Yes (Hospitalization)
  Sender: FDA-Public Use
  Company Number: US-ACTELION-A-US2016-140067

PATIENT
  Age: 50 Year
  Sex: Female

DRUGS (3)
  1. REVATIO [Concomitant]
     Active Substance: SILDENAFIL CITRATE
  2. OPSUMIT [Suspect]
     Active Substance: MACITENTAN
     Indication: PULMONARY HYPERTENSION
     Dosage: 10 MG, QD
     Route: 048
     Dates: start: 20141007
  3. COUMADIN [Concomitant]
     Active Substance: WARFARIN SODIUM

REACTIONS (8)
  - Diarrhoea [Unknown]
  - Cellulitis [Unknown]
  - Dehydration [Unknown]
  - Urticaria [Unknown]
  - Hypersensitivity [Unknown]
  - Vomiting [Unknown]
  - Intervertebral disc protrusion [Unknown]
  - Rash [Unknown]
